FAERS Safety Report 13865165 (Version 1)
Quarter: 2017Q3

REPORT INFORMATION
  Report Type: Spontaneous
  Country: US (occurrence: US)
  Receive Date: 20170814
  Receipt Date: 20170814
  Transmission Date: 20171127
  Serious: No
  Sender: FDA-Public Use
  Company Number: US-ALLERGAN-1706063US

PATIENT
  Sex: Female

DRUGS (1)
  1. KADIAN [Suspect]
     Active Substance: MORPHINE SULFATE
     Indication: PRODUCT USED FOR UNKNOWN INDICATION
     Dosage: UNK
     Route: 065

REACTIONS (6)
  - Feeling abnormal [Unknown]
  - Gastrointestinal pain [Unknown]
  - Gastrointestinal disorder [Unknown]
  - Polyp [Unknown]
  - Malaise [Unknown]
  - Colitis ulcerative [Unknown]
